FAERS Safety Report 23285275 (Version 5)
Quarter: 2025Q1

REPORT INFORMATION
  Report Type: Report from Study
  Country: JP (occurrence: JP)
  Receive Date: 20231211
  Receipt Date: 20250127
  Transmission Date: 20250409
  Serious: Yes (Death, Disabling, Other)
  Sender: ALEXION PHARMACEUTICALS
  Company Number: 2023A278778

PATIENT
  Age: 67 Year
  Weight: 67 kg

DRUGS (4)
  1. DURVALUMAB [Suspect]
     Active Substance: DURVALUMAB
     Indication: Non-small cell lung cancer
  2. TREMELIMUMAB [Suspect]
     Active Substance: TREMELIMUMAB
     Indication: Non-small cell lung cancer
  3. PEMETREXED [Suspect]
     Active Substance: PEMETREXED
     Route: 065
  4. CISPLATIN [Suspect]
     Active Substance: CISPLATIN
     Indication: Non-small cell lung cancer
     Route: 065

REACTIONS (7)
  - Pulmonary artery thrombosis [Recovering/Resolving]
  - Rash [Recovering/Resolving]
  - Renal disorder [Recovering/Resolving]
  - Neutropenia [Recovered/Resolved]
  - Venous thrombosis limb [Recovering/Resolving]
  - Quadriplegia [Not Recovered/Not Resolved]
  - Malignant neoplasm progression [Fatal]
